FAERS Safety Report 25987918 (Version 2)
Quarter: 2025Q4

REPORT INFORMATION
  Report Type: Spontaneous
  Country: US (occurrence: US)
  Receive Date: 20251103
  Receipt Date: 20251205
  Transmission Date: 20260119
  Serious: No
  Sender: AMGEN
  Company Number: US-AMGEN-USASP2025211465

PATIENT
  Age: 59 Year
  Sex: Female

DRUGS (4)
  1. AMJEVITA [Suspect]
     Active Substance: ADALIMUMAB-ATTO
     Indication: Product used for unknown indication
     Dosage: 40 MILLIGRAM/ 0.4 ML, Q2WK
     Route: 058
     Dates: start: 202510
  2. AMJEVITA [Suspect]
     Active Substance: ADALIMUMAB-ATTO
     Dosage: 40 MILLIGRAM/ 0.4 ML Q2WK
     Route: 058
  3. AMJEVITA [Suspect]
     Active Substance: ADALIMUMAB-ATTO
     Dosage: 40 MILLIGRAM/ 0.4 ML Q2WK
     Route: 058
  4. AMJEVITA [Suspect]
     Active Substance: ADALIMUMAB-ATTO
     Dosage: 40 MILLIGRAM/ 0.4 ML, Q2WK
     Route: 058

REACTIONS (1)
  - Frustration tolerance decreased [Unknown]

NARRATIVE: CASE EVENT DATE: 20251020
